FAERS Safety Report 12456219 (Version 2)
Quarter: 2016Q4

REPORT INFORMATION
  Report Type: Report from Study
  Country: PH (occurrence: PH)
  Receive Date: 20160610
  Receipt Date: 20161017
  Transmission Date: 20170207
  Serious: Yes (Hospitalization, Other)
  Sender: FDA-Public Use
  Company Number: PH-009507513-1606PHL001803

PATIENT
  Age: 57 Year
  Sex: Female

DRUGS (4)
  1. JANUMET [Suspect]
     Active Substance: METFORMIN HYDROCHLORIDE\SITAGLIPTIN PHOSPHATE
     Dosage: ONE TABLET TWICE A DAY
     Route: 048
     Dates: start: 201607
  2. JANUMET [Suspect]
     Active Substance: METFORMIN HYDROCHLORIDE\SITAGLIPTIN PHOSPHATE
     Indication: DIABETES MELLITUS
     Dosage: ONE TABLET, ONCE A DAY
     Route: 048
     Dates: start: 2014, end: 201606
  3. NORIZEC [Concomitant]
     Indication: DIABETES MELLITUS
     Dosage: UNK
     Dates: start: 2014
  4. NORIZEC [Concomitant]
     Dosage: UNK

REACTIONS (7)
  - Urinary tract infection [Unknown]
  - Inappropriate schedule of drug administration [Unknown]
  - Hypertension [Recovered/Resolved]
  - Blood glucose increased [Recovering/Resolving]
  - Syncope [Recovering/Resolving]
  - Abasia [Unknown]
  - Adverse event [Unknown]

NARRATIVE: CASE EVENT DATE: 2014
